FAERS Safety Report 16787427 (Version 4)
Quarter: 2020Q1

REPORT INFORMATION
  Report Type: Report from Study
  Country: CO (occurrence: CO)
  Receive Date: 20190909
  Receipt Date: 20200226
  Transmission Date: 20200409
  Serious: Yes (Other)
  Sender: FDA-Public Use
  Company Number: CO-BAYER-2019-157669

PATIENT
  Age: 68 Year
  Sex: Female

DRUGS (7)
  1. NEXAVAR [Suspect]
     Active Substance: SORAFENIB
     Indication: RENAL CELL CARCINOMA
     Dosage: TWO PILLS A DAY ONE IN THE MORNING AND ONE IN THE EVENING
     Dates: start: 201910
  2. NEXAVAR [Suspect]
     Active Substance: SORAFENIB
     Indication: RENAL CELL CARCINOMA
     Dosage: 200 MG, BID
  3. INSULIN [Concomitant]
     Active Substance: INSULIN NOS
     Indication: DIABETES MELLITUS
     Dosage: UNK
  4. CLONAZEPAM. [Concomitant]
     Active Substance: CLONAZEPAM
     Dosage: UNK
  5. NEXAVAR [Suspect]
     Active Substance: SORAFENIB
     Indication: RENAL CELL CARCINOMA
     Dosage: 400 MG, BID (2 TABLETS IN THE MORNING AND 2 AT NIGHT EVERY 12 HOURS)
     Route: 048
     Dates: start: 20170908, end: 201903
  6. NEXAVAR [Suspect]
     Active Substance: SORAFENIB
     Indication: RENAL CELL CARCINOMA
     Dosage: 200 MG, BID (TAKING 1 TABLET IN THE MORNING AND 1 AT NIGHT EVERY 12 HOURS)
     Route: 048
     Dates: start: 201903
  7. ENALAPRIL [Concomitant]
     Active Substance: ENALAPRIL
     Dosage: UNK

REACTIONS (11)
  - Gastrointestinal disorder [None]
  - Somnolence [None]
  - Dry skin [None]
  - Vomiting [None]
  - Feeling of despair [None]
  - Gastritis [None]
  - Weight decreased [None]
  - Cough [None]
  - Diarrhoea [Recovering/Resolving]
  - Off label use [None]
  - Alopecia [None]

NARRATIVE: CASE EVENT DATE: 201910
